FAERS Safety Report 6908624-4 (Version None)
Quarter: 2010Q3

REPORT INFORMATION
  Report Type: 
  Country: None (occurrence: None)
  Receive Date: 20100805
  Receipt Date: 20100727
  Transmission Date: 20110219
  Serious: Yes (Life-Threatening, Hospitalization)
  Sender: FDA-Public Use
  Company Number: JP-PFIZER INC-2010073365

PATIENT
  Age: 83 Year
  Sex: Male

DRUGS (7)
  1. ESTRACYT [Suspect]
     Indication: PROSTATE CANCER RECURRENT
     Dosage: 626.8 MG/DAY
     Route: 048
     Dates: start: 20100203, end: 20100216
  2. ESTRACYT [Suspect]
     Dosage: 313.4 MG/DAY
     Route: 048
     Dates: start: 20100217, end: 20100317
  3. WARFARIN POTASSIUM [Concomitant]
     Dosage: 1 MG/DAY
     Route: 048
     Dates: start: 20100203, end: 20100317
  4. FAMOTIDINE [Concomitant]
     Dosage: 40 MG/DAY
     Route: 048
     Dates: start: 20100203, end: 20100317
  5. NAFTOPIDIL [Concomitant]
     Dosage: 50 MG/DAY
     Route: 048
     Dates: end: 20100317
  6. VESICARE [Concomitant]
     Dosage: 5 MG/DAY
     Route: 048
     Dates: end: 20100317
  7. PRIMPERAN TAB [Concomitant]
     Dosage: 10 MG/DAY
     Route: 048
     Dates: start: 20100203, end: 20100317

REACTIONS (2)
  - HEPATIC FUNCTION ABNORMAL [None]
  - PRURITUS GENERALISED [None]
